FAERS Safety Report 14366118 (Version 2)
Quarter: 2018Q1

REPORT INFORMATION
  Report Type: Report from Study
  Country: US (occurrence: US)
  Receive Date: 20180109
  Receipt Date: 20180219
  Transmission Date: 20180509
  Serious: Yes (Hospitalization, Other)
  Sender: FDA-Public Use
  Company Number: US-TESARO, INC-US-2017TSO04397

PATIENT

DRUGS (2)
  1. ZEJULA [Suspect]
     Active Substance: NIRAPARIB
     Indication: OVARIAN CANCER
     Dosage: 100 MG, QD
     Route: 048
  2. ZEJULA [Suspect]
     Active Substance: NIRAPARIB
     Dosage: 100 MG, QD
     Route: 048
     Dates: end: 20171213

REACTIONS (11)
  - Delirium [Recovering/Resolving]
  - Red blood cell count decreased [Not Recovered/Not Resolved]
  - Laboratory test abnormal [Unknown]
  - Speech disorder [Recovering/Resolving]
  - Adverse drug reaction [Unknown]
  - Mental status changes [Recovering/Resolving]
  - Hallucination [Recovering/Resolving]
  - Gait disturbance [Not Recovered/Not Resolved]
  - Ammonia increased [Not Recovered/Not Resolved]
  - Intentional underdose [Recovered/Resolved]
  - Drug intolerance [Unknown]
